FAERS Safety Report 5602641-2 (Version None)
Quarter: 2008Q1

REPORT INFORMATION
  Report Type: 
  Country: None (occurrence: None)
  Receive Date: 20080125
  Receipt Date: 20080115
  Transmission Date: 20080703
  Serious: Yes (Other)
  Sender: FDA-Public Use
  Company Number: US-ASTRAZENECA-2006UW10175

PATIENT
  Age: 7 Year
  Sex: Male
  Weight: 40.9 kg

DRUGS (8)
  1. SEROQUEL [Suspect]
     Indication: ATTENTION DEFICIT/HYPERACTIVITY DISORDER
     Dosage: 200MG-1000 MG
     Route: 048
     Dates: start: 20030101, end: 20060101
  2. SEROQUEL [Suspect]
     Indication: BIPOLAR DISORDER
     Dosage: 200MG-1000 MG
     Route: 048
     Dates: start: 20030101, end: 20060101
  3. SEROQUEL [Suspect]
     Indication: OBSESSIVE-COMPULSIVE DISORDER
     Dosage: 200MG-1000 MG
     Route: 048
     Dates: start: 20030101, end: 20060101
  4. ZYPREXA [Concomitant]
     Dosage: 5-10 MG
     Dates: start: 20060601
  5. ABILIFY [Concomitant]
     Dosage: 2-5 MG
     Dates: start: 20060101
  6. TRAZODONE HCL [Concomitant]
     Dates: start: 20030101
  7. DEPAKOTE [Concomitant]
     Dates: start: 20060101
  8. RITALIN [Concomitant]
     Dates: start: 20060101

REACTIONS (4)
  - ADENOTONSILLECTOMY [None]
  - ARRHYTHMIA [None]
  - HYPERGLYCAEMIA [None]
  - OBESITY [None]
